FAERS Safety Report 4536749-X (Version None)
Quarter: 2004Q4

REPORT INFORMATION
  Report Type: 
  Country: None (occurrence: None)
  Receive Date: 20041223
  Receipt Date: 20041217
  Transmission Date: 20050328
  Serious: Yes (Other)
  Sender: FDA-Public Use
  Company Number: US-AMGEN-US104363

PATIENT
  Age: 1 Week
  Sex: Male

DRUGS (1)
  1. PROCRIT [Suspect]
     Indication: PREMATURE BABY
     Dates: start: 20041212

REACTIONS (3)
  - BODY TEMPERATURE DECREASED [None]
  - INFECTION [None]
  - WHITE BLOOD CELL COUNT INCREASED [None]
